FAERS Safety Report 6589857-6 (Version None)
Quarter: 2010Q1

REPORT INFORMATION
  Report Type: 
  Country: None (occurrence: None)
  Receive Date: 20100219
  Receipt Date: 20100211
  Transmission Date: 20100710
  Serious: Yes (Hospitalization)
  Sender: FDA-Public Use
  Company Number: US-JNJFOC-20100206763

PATIENT
  Age: 61 Year
  Sex: Male

DRUGS (5)
  1. SPORANOX [Suspect]
     Indication: BLASTOMYCOSIS
     Route: 048
  2. GABAPENTIN [Concomitant]
     Indication: PAIN
     Route: 048
  3. INSULIN [Concomitant]
     Indication: DIABETES MELLITUS
  4. PRILOSEC [Concomitant]
     Indication: GASTROOESOPHAGEAL REFLUX DISEASE
     Route: 048
  5. CELEXA [Concomitant]
     Indication: DEPRESSION
     Route: 048

REACTIONS (4)
  - ADVERSE EVENT [None]
  - HYPERCALCAEMIA [None]
  - HYPOKALAEMIA [None]
  - MENTAL STATUS CHANGES [None]
